FAERS Safety Report 17370780 (Version 1)
Quarter: 2020Q1

REPORT INFORMATION
  Report Type: Spontaneous
  Country: US (occurrence: US)
  Receive Date: 20200205
  Receipt Date: 20200205
  Transmission Date: 20200409
  Serious: No
  Sender: FDA-Public Use
  Company Number: US-GLENMARK PHARMACEUTICALS-2019GMK044586

PATIENT

DRUGS (1)
  1. DESMOPRESSIN ACETATE TABLETS, 0.2MG [Suspect]
     Active Substance: DESMOPRESSIN ACETATE
     Indication: DIABETES INSIPIDUS
     Dosage: 0.1 MG, BID (HALF A TABLET BY MOUTH IN THE MORNING AND HALF A TABLET AT NIGHT)
     Route: 048
     Dates: start: 201911

REACTIONS (5)
  - Product taste abnormal [Unknown]
  - Drug ineffective [Unknown]
  - Intentional product use issue [Unknown]
  - Thirst [Unknown]
  - Pollakiuria [Unknown]

NARRATIVE: CASE EVENT DATE: 201911
